FAERS Safety Report 8770120 (Version 2)
Quarter: 2013Q4

REPORT INFORMATION
  Report Type: Report from Study
  Country: US (occurrence: US)
  Receive Date: 20120831
  Receipt Date: 20131211
  Transmission Date: 20140711
  Serious: Yes (Hospitalization)
  Sender: FDA-Public Use
  Company Number: US-ELI_LILLY_AND_COMPANY-US201208008766

PATIENT
  Age: 80 Year
  Sex: Female

DRUGS (1)
  1. TERIPARATIDE [Suspect]
     Indication: PRODUCT USED FOR UNKNOWN INDICATION
     Dosage: 20 UG, QD
     Route: 058
     Dates: start: 20120415

REACTIONS (5)
  - Pneumonia [Unknown]
  - Pneumonia [Unknown]
  - Cystitis [Unknown]
  - Chronic inflammatory demyelinating polyradiculoneuropathy [Unknown]
  - Lung disorder [Unknown]
